FAERS Safety Report 5209479-9 (Version None)
Quarter: 2007Q1

REPORT INFORMATION
  Report Type: 
  Country: None (occurrence: None)
  Receive Date: 20070111
  Receipt Date: 20061221
  Transmission Date: 20070707
  Serious: No
  Sender: FDA-Public Use
  Company Number: TPA2007A00023

PATIENT
  Age: 79 Year
  Sex: Female
  Weight: 61.6892 kg

DRUGS (5)
  1. ROZEREM [Suspect]
     Dosage: 8 MG, QHS, PER ORAL
     Route: 048
     Dates: start: 20061201, end: 20061201
  2. NORVASC [Concomitant]
  3. ZOCOR [Concomitant]
  4. LEVOXYL [Concomitant]
  5. EVISTA [Concomitant]

REACTIONS (3)
  - DRUG INEFFECTIVE [None]
  - INSOMNIA [None]
  - SELF-MEDICATION [None]
